FAERS Safety Report 13808425 (Version 2)
Quarter: 2018Q3

REPORT INFORMATION
  Report Type: Report from Study
  Country: None (occurrence: BR)
  Receive Date: 20170728
  Receipt Date: 20180704
  Transmission Date: 20181010
  Serious: Yes (Hospitalization, Other)
  Sender: FDA-Public Use
  Company Number: BR-ABBVIE-17K-020-2054388-00

PATIENT
  Sex: Female
  Weight: 58 kg

DRUGS (9)
  1. HUMIRA [Suspect]
     Active Substance: ADALIMUMAB
     Route: 058
     Dates: start: 20170724
  2. SIMVASTATIN. [Concomitant]
     Active Substance: SIMVASTATIN
     Dosage: 320 BY 5 (AS REPORTED)
  3. DIPROZIL [Concomitant]
     Indication: SKIN HYPERTROPHY
     Dosage: 320 BY 5 (AS REPORTED)
  4. SIMVASTATIN. [Concomitant]
     Active Substance: SIMVASTATIN
     Indication: BLOOD CHOLESTEROL INCREASED
     Dosage: 320 BY 5 (AS REPORTED)
  5. OSTEOTEC [Concomitant]
     Indication: OSTEOPOROSIS
     Dosage: 320 BY 5 (AS REPORTED)
  6. HUMIRA [Suspect]
     Active Substance: ADALIMUMAB
     Indication: PSORIASIS
     Route: 058
     Dates: start: 20140814, end: 2017
  7. DIPROZIL [Concomitant]
     Indication: DRY SKIN
     Dosage: 320 BY 5 (AS REPORTED)
  8. OSTEOTEC [Concomitant]
     Dosage: 320 BY 5 (AS REPORTED)
  9. DIPROZIL [Concomitant]
     Indication: PRURITUS

REACTIONS (4)
  - Skin hypertrophy [Recovering/Resolving]
  - Pruritus [Recovering/Resolving]
  - Dry skin [Recovering/Resolving]
  - Cholelithiasis [Recovered/Resolved]
